FAERS Safety Report 5430860-7 (Version None)
Quarter: 2007Q3

REPORT INFORMATION
  Report Type: 
  Country: None (occurrence: None)
  Receive Date: 20070830
  Receipt Date: 20061219
  Transmission Date: 20080115
  Serious: No
  Sender: FDA-Public Use
  Company Number: A0632201A

PATIENT
  Sex: Female

DRUGS (1)
  1. WELLBUTRIN XL [Suspect]
     Indication: DRUG USE FOR UNKNOWN INDICATION
     Dosage: 300MG UNKNOWN
     Route: 048

REACTIONS (4)
  - DRUG INEFFECTIVE [None]
  - EUPHORIC MOOD [None]
  - MEDICATION RESIDUE [None]
  - WRONG TECHNIQUE IN DRUG USAGE PROCESS [None]
